FAERS Safety Report 4318882-0 (Version None)
Quarter: 2004Q1

REPORT INFORMATION
  Report Type: 
  Country: None (occurrence: None)
  Receive Date: 20040318
  Receipt Date: 20040310
  Transmission Date: 20041129
  Serious: Yes (Hospitalization)
  Sender: FDA-Public Use
  Company Number: FI-ROCHE-361326

PATIENT
  Age: 19 Year
  Sex: Male

DRUGS (2)
  1. ROACCUTAN [Suspect]
     Indication: ACNE
     Route: 048
     Dates: start: 20021214, end: 20030223
  2. DOSYKLIN [Concomitant]
     Route: 048
     Dates: start: 20021107, end: 20021121

REACTIONS (1)
  - CEREBRAL INFARCTION [None]
